FAERS Safety Report 9377059 (Version 1)
Quarter: 2013Q3

REPORT INFORMATION
  Report Type: Spontaneous
  Country: US (occurrence: US)
  Receive Date: 20130701
  Receipt Date: 20130701
  Transmission Date: 20140515
  Serious: Yes (Other)
  Sender: FDA-Public Use
  Company Number: US-GENZYME-FABR-1003370

PATIENT
  Sex: Male

DRUGS (5)
  1. FABRAZYME [Suspect]
     Indication: FABRY^S DISEASE
     Dosage: 70 MG, Q2W
     Route: 042
  2. LASIX [Concomitant]
     Indication: PRODUCT USED FOR UNKNOWN INDICATION
     Dosage: UNK
     Route: 065
  3. PREDNISONE [Concomitant]
     Indication: PREMEDICATION
     Dosage: UNK
     Route: 065
  4. BENADRYL [Concomitant]
     Indication: PREMEDICATION
     Dosage: UNK
     Route: 042
  5. ACETAMINOPHEN [Concomitant]
     Indication: PREMEDICATION
     Dosage: UNK
     Route: 065

REACTIONS (3)
  - Endocarditis [Unknown]
  - Pulmonary valve disease [Unknown]
  - Oedema [Unknown]
